FAERS Safety Report 9357280 (Version 1)
Quarter: 2013Q2

REPORT INFORMATION
  Report Type: Spontaneous
  Country: TR (occurrence: TR)
  Receive Date: 20130620
  Receipt Date: 20130620
  Transmission Date: 20140414
  Serious: Yes (Hospitalization)
  Sender: FDA-Public Use
  Company Number: TR-SANOFI-AVENTIS-2013SA005137

PATIENT
  Age: 27 Year
  Sex: Female
  Weight: 104 kg

DRUGS (4)
  1. LANTUS SOLOSTAR [Suspect]
     Indication: GESTATIONAL DIABETES
     Route: 058
     Dates: start: 20130118, end: 20130208
  2. SOLOSTAR [Suspect]
     Indication: DEVICE THERAPY
     Dates: start: 20130118
  3. FOLIC ACID [Concomitant]
     Indication: PROPHYLAXIS
     Route: 048
     Dates: start: 201211
  4. DECAVIT [Concomitant]
     Indication: PROPHYLAXIS
     Route: 048
     Dates: start: 201211

REACTIONS (2)
  - Premature rupture of membranes [Unknown]
  - Exposure during pregnancy [Unknown]
